FAERS Safety Report 13036859 (Version 1)
Quarter: 2016Q4

REPORT INFORMATION
  Report Type: Spontaneous
  Country: GB (occurrence: GB)
  Receive Date: 20161216
  Receipt Date: 20161216
  Transmission Date: 20170207
  Serious: Yes (Hospitalization)
  Sender: FDA-Public Use
  Company Number: GB-MYLANLABS-2016M1055075

PATIENT

DRUGS (1)
  1. IBUPROFEN. [Suspect]
     Active Substance: IBUPROFEN
     Indication: PRODUCT USED FOR UNKNOWN INDICATION
     Dosage: UNK
     Route: 065
     Dates: start: 20161120

REACTIONS (9)
  - Mucosal inflammation [Unknown]
  - Stomatitis [Unknown]
  - Tongue blistering [Unknown]
  - Decreased appetite [Unknown]
  - Noninfective gingivitis [Unknown]
  - Throat lesion [Unknown]
  - Oral mucosal blistering [Unknown]
  - Gingival blister [Unknown]
  - Blister [Unknown]

NARRATIVE: CASE EVENT DATE: 20161121
